FAERS Safety Report 7146024 (Version 2)
Quarter: 2014Q2

REPORT INFORMATION
  Report Type: Spontaneous
  Country: US (occurrence: None)
  Receive Date: 20090924
  Receipt Date: 20140416
  Transmission Date: 20141212
  Serious: Yes (Hospitalization, Other)
  Sender: FDA-Public Use
  Company Number: 08-AUR-08320

PATIENT
  Age: 16 Month
  Sex: Female

DRUGS (5)
  1. LAMOTRIGINE [Suspect]
     Indication: CONVULSION
     Dosage: 75MG - BID  - ORAL
     Route: 048
  2. AUGMENTIN [Suspect]
     Indication: INFLUENZA
     Dates: start: 19960101
  3. PENICILLIN V [Suspect]
  4. PHENYTOIN [Suspect]
     Indication: CONVULSION
     Dosage: 9 MG-DAILY
  5. FLUCONAZOLE [Concomitant]

REACTIONS (15)
  - Rash generalised [None]
  - Pharyngeal oedema [None]
  - Candida infection [None]
  - Epistaxis [None]
  - Vomiting projectile [None]
  - Diarrhoea [None]
  - Convulsion [None]
  - Drug ineffective [None]
  - Constipation [None]
  - Autism spectrum disorder [None]
  - Malaise [None]
  - Upper limb fracture [None]
  - Malnutrition [None]
  - Lactose intolerance [None]
  - Impaired self-care [None]
